FAERS Safety Report 7233763-0 (Version None)
Quarter: 2011Q1

REPORT INFORMATION
  Report Type: 
  Country: None (occurrence: None)
  Receive Date: 20110113
  Receipt Date: 20110113
  Transmission Date: 20110831
  Serious: Yes (Hospitalization)
  Sender: FDA-Public Use
  Company Number: None

PATIENT
  Age: 73 Year
  Sex: Male
  Weight: 85 kg

DRUGS (1)
  1. IODIXANOL [Suspect]
     Indication: COMPUTERISED TOMOGRAM
     Dosage: 80 ML ONCE IV
     Route: 042
     Dates: start: 20100319, end: 20100319

REACTIONS (17)
  - NAUSEA [None]
  - VISION BLURRED [None]
  - FAECAL INCONTINENCE [None]
  - ABDOMINAL PAIN [None]
  - HYPOTENSION [None]
  - BLOOD CREATININE INCREASED [None]
  - DIZZINESS [None]
  - ASTHENIA [None]
  - CONTRAST MEDIA REACTION [None]
  - TACHYCARDIA [None]
  - DIARRHOEA [None]
  - URINARY INCONTINENCE [None]
  - HEADACHE [None]
  - BLOOD UREA INCREASED [None]
  - LEUKOCYTOSIS [None]
  - VOMITING [None]
  - RASH [None]
